FAERS Safety Report 7641775-8 (Version None)
Quarter: 2011Q3

REPORT INFORMATION
  Report Type: 
  Country: None (occurrence: None)
  Receive Date: 20110728
  Receipt Date: 20110708
  Transmission Date: 20111222
  Serious: Yes (Hospitalization, Other)
  Sender: FDA-Public Use
  Company Number: MX-ROCHE-756052

PATIENT
  Sex: Female
  Weight: 70 kg

DRUGS (5)
  1. DICLOFENAC SODIUM [Concomitant]
     Indication: PAIN
     Dosage: FREQUENCY: QD
     Route: 048
     Dates: start: 20000101, end: 20090101
  2. TRASTUZUMAB [Suspect]
     Indication: BREAST CANCER
     Route: 042
     Dates: start: 20100901, end: 20110722
  3. HYDROCORTISONE [Concomitant]
     Route: 042
     Dates: start: 20110114
  4. NOVOTIRAL [Concomitant]
     Indication: HYPOTHYROIDISM
     Route: 048
     Dates: start: 20040101
  5. METHOTREXATE [Concomitant]
     Indication: BREAST CANCER
     Dosage: FREQUENCY: QS
     Dates: start: 20000101, end: 20090101

REACTIONS (5)
  - TOXICITY TO VARIOUS AGENTS [None]
  - THROMBOCYTOPENIA [None]
  - EJECTION FRACTION DECREASED [None]
  - GINGIVITIS [None]
  - MUCOSAL INFLAMMATION [None]
